FAERS Safety Report 4881866-8 (Version None)
Quarter: 2006Q1

REPORT INFORMATION
  Report Type: 
  Country: None (occurrence: None)
  Receive Date: 20060117
  Receipt Date: 20060111
  Transmission Date: 20060701
  Serious: Yes (Death, Hospitalization)
  Sender: FDA-Public Use
  Company Number: PHBS2006PT00790

PATIENT
  Age: 75 Year
  Sex: Female
  Weight: 80 kg

DRUGS (7)
  1. LEPONEX [Suspect]
     Indication: DEMENTIA
     Dosage: 25 MG/DAY
     Route: 048
     Dates: start: 20050101, end: 20051205
  2. CARBIDOPA AND LEVODOPA [Concomitant]
     Indication: PARKINSON'S DISEASE
     Route: 048
  3. OMEPRAZOLE [Concomitant]
  4. AAS [Concomitant]
  5. CARBAMAZEPINE [Concomitant]
  6. PRAVASTATIN [Concomitant]
  7. CLOMIPRAMINE HYDROCHLORIDE [Concomitant]

REACTIONS (14)
  - BONE MARROW FAILURE [None]
  - CONFUSIONAL STATE [None]
  - DYSPNOEA [None]
  - ERYTHROPOIESIS ABNORMAL [None]
  - GAIT DISTURBANCE [None]
  - GRANULOCYTOPENIA [None]
  - MACROPHAGES INCREASED [None]
  - MEGAKARYOCYTES ABNORMAL [None]
  - ODYNOPHAGIA [None]
  - PERITONSILLAR ABSCESS [None]
  - PLASMACYTOSIS [None]
  - PNEUMOCOCCAL SEPSIS [None]
  - PYREXIA [None]
  - SEPTIC SHOCK [None]
